FAERS Safety Report 9170974 (Version 1)
Quarter: 2013Q1

REPORT INFORMATION
  Report Type: Spontaneous
  Country: ES (occurrence: ES)
  Receive Date: 20130319
  Receipt Date: 20130319
  Transmission Date: 20140127
  Serious: Yes (Death, Other)
  Sender: FDA-Public Use
  Company Number: ES-BAYER-2013-030895

PATIENT
  Age: 3 Hour
  Sex: 0
  Weight: 2.5 kg

DRUGS (3)
  1. NIFEDIPINE [Suspect]
     Route: 064
  2. BETAMETHASONE [Suspect]
     Route: 064
  3. ATOSIBAN [Suspect]
     Route: 064

REACTIONS (6)
  - Circulatory collapse [Fatal]
  - Pulmonary hypoplasia [Fatal]
  - Premature baby [None]
  - Hydrothorax [None]
  - Foetal monitoring abnormal [None]
  - Maternal drugs affecting foetus [None]
